FAERS Safety Report 25836001 (Version 3)
Quarter: 2025Q3

REPORT INFORMATION
  Report Type: Report from Study
  Country: US (occurrence: US)
  Receive Date: 20250923
  Receipt Date: 20250925
  Transmission Date: 20251021
  Serious: Yes (Hospitalization, Other)
  Sender: SANOFI AVENTIS
  Company Number: US-SA-2025SA276289

PATIENT
  Age: 64 Year
  Sex: Female

DRUGS (1)
  1. TZIELD [Suspect]
     Active Substance: TEPLIZUMAB-MZWV
     Indication: Diabetes prophylaxis
     Dosage: UNK, QD
     Route: 042
     Dates: start: 20250910, end: 20250911

REACTIONS (6)
  - Cytokine release syndrome [Unknown]
  - Nausea [Unknown]
  - Headache [Unknown]
  - Pain [Unknown]
  - Chest pain [Unknown]
  - Hypotension [Unknown]

NARRATIVE: CASE EVENT DATE: 20250910
